FAERS Safety Report 20721461 (Version 1)
Quarter: 2022Q2

REPORT INFORMATION
  Report Type: Spontaneous
  Country: US (occurrence: None)
  Receive Date: 20220417
  Receipt Date: 20220417
  Transmission Date: 20220721
  Serious: Yes (Other)
  Sender: FDA-Public Use
  Company Number: None

PATIENT
  Age: 19 Year
  Weight: 45 kg

DRUGS (4)
  1. VYVANSE [Suspect]
     Active Substance: LISDEXAMFETAMINE DIMESYLATE
     Indication: Attention deficit hyperactivity disorder
     Dosage: OTHER QUANTITY : 1 CAPSULE(S);?
     Route: 048
  2. ESCITALOPRAM [Concomitant]
     Active Substance: ESCITALOPRAM OXALATE
  3. ATOMOXETINE [Concomitant]
  4. BUPROPION [Concomitant]
     Active Substance: BUPROPION

REACTIONS (5)
  - Suicidal ideation [None]
  - Feeling abnormal [None]
  - Feeling of despair [None]
  - Feeling abnormal [None]
  - Self-injurious ideation [None]

NARRATIVE: CASE EVENT DATE: 20211116
